FAERS Safety Report 12583902 (Version 1)
Quarter: 2016Q3

REPORT INFORMATION
  Report Type: Spontaneous
  Country: JP (occurrence: JP)
  Receive Date: 20160722
  Receipt Date: 20160722
  Transmission Date: 20161109
  Serious: Yes (Other)
  Sender: FDA-Public Use
  Company Number: JP-JNJFOC-20160716567

PATIENT
  Sex: Female

DRUGS (11)
  1. PULMICORT TURBUHALER [Concomitant]
     Active Substance: BUDESONIDE
     Route: 065
  2. PREDONINE [Concomitant]
     Active Substance: PREDNISOLONE\PREDNISOLONE ACETATE\PREDNISOLONE SODIUM SUCCINATE
     Route: 065
  3. METHERGIN [Concomitant]
     Active Substance: METHYLERGONOVINE MALEATE
     Route: 065
  4. EXCELASE [Concomitant]
     Active Substance: PANCRELIPASE
     Route: 065
  5. PANSPORIN T [Concomitant]
     Route: 065
  6. CALONAL [Concomitant]
     Active Substance: ACETAMINOPHEN
     Route: 065
  7. REMICADE [Suspect]
     Active Substance: INFLIXIMAB
     Indication: PRODUCT USED FOR UNKNOWN INDICATION
     Route: 042
  8. RESTAMINE [Concomitant]
     Route: 065
  9. XYZAL [Concomitant]
     Active Substance: LEVOCETIRIZINE DIHYDROCHLORIDE
     Route: 065
  10. FERROMIA [Concomitant]
     Active Substance: FERROUS CITRATE
     Route: 065
  11. ASACOL [Concomitant]
     Active Substance: MESALAMINE
     Route: 065

REACTIONS (2)
  - Exposure during pregnancy [Unknown]
  - Abnormal labour [Recovered/Resolved]

NARRATIVE: CASE EVENT DATE: 20160525
